FAERS Safety Report 17219070 (Version 1)
Quarter: 2020Q1

REPORT INFORMATION
  Report Type: Spontaneous
  Country: US (occurrence: US)
  Receive Date: 20191230
  Receipt Date: 20191230
  Transmission Date: 20200409
  Serious: Yes (Hospitalization)
  Sender: FDA-Public Use
  Company Number: None

PATIENT
  Age: 62 Year
  Sex: Male

DRUGS (14)
  1. ATORVASTATIN 80MG [Concomitant]
     Active Substance: ATORVASTATIN
  2. ASPIRIN 325MG [Concomitant]
     Active Substance: ASPIRIN
  3. GABAPENTIN 300MG [Concomitant]
     Active Substance: GABAPENTIN
  4. METAMUCIL [Concomitant]
     Active Substance: PLANTAGO SEED
  5. IMODIUM 2MG [Concomitant]
  6. VICTOZA 18MG/3MLS [Concomitant]
  7. ZYRTEC [Concomitant]
     Active Substance: CETIRIZINE HYDROCHLORIDE
  8. ESCITALOPRAM [Concomitant]
     Active Substance: ESCITALOPRAM OXALATE
  9. SPRYCEL [Suspect]
     Active Substance: DASATINIB
     Indication: CHRONIC MYELOID LEUKAEMIA
     Route: 048
     Dates: start: 20191106
  10. NOVOLIN 100MG/ML [Concomitant]
  11. TOPROL-XL 25MG [Concomitant]
  12. QUINAPRIL 20MG [Concomitant]
  13. ELIQUIS [Concomitant]
     Active Substance: APIXABAN
  14. LANTUS SOLOSTAR [Concomitant]
     Active Substance: INSULIN GLARGINE

REACTIONS (4)
  - Pneumonia [None]
  - Renal impairment [None]
  - Nausea [None]
  - Vomiting [None]

NARRATIVE: CASE EVENT DATE: 20191216
